FAERS Safety Report 6622116-1 (Version None)
Quarter: 2010Q1

REPORT INFORMATION
  Report Type: 
  Country: None (occurrence: None)
  Receive Date: 20100303
  Receipt Date: 20100226
  Transmission Date: 20100710
  Serious: Yes (Life-Threatening, Hospitalization)
  Sender: FDA-Public Use
  Company Number: 2009-201115-NL

PATIENT
  Age: 78 Year
  Sex: Male
  Weight: 54.6 kg

DRUGS (9)
  1. ROCURONIUM BROMIDE [Suspect]
     Indication: NEUROMUSCULAR BLOCKING THERAPY
     Dosage: 36 MG;ONCE;INBO ; 6 MG;ONCE;INBO
     Dates: start: 20090629, end: 20090629
  2. ROCURONIUM BROMIDE [Suspect]
     Indication: NEUROMUSCULAR BLOCKING THERAPY
     Dosage: 36 MG;ONCE;INBO ; 6 MG;ONCE;INBO
     Dates: start: 20090629, end: 20090629
  3. ROCURONIUM BROMIDE [Suspect]
     Dosage: 8 DF;INDRP
     Route: 041
     Dates: start: 20090629, end: 20090629
  4. FENTANYL CITRATE [Concomitant]
  5. PROPOFOL [Concomitant]
  6. ATROPINE SULFATE [Concomitant]
  7. VAGOSTIGMIN [Concomitant]
  8. MORPHINE HYDROCHLORIDE [Concomitant]
  9. ANAPEINE [Concomitant]

REACTIONS (10)
  - ACUTE RESPIRATORY DISTRESS SYNDROME [None]
  - ANAESTHETIC COMPLICATION [None]
  - DEVICE LEAKAGE [None]
  - DISSEMINATED INTRAVASCULAR COAGULATION [None]
  - FAILURE TO ANASTOMOSE [None]
  - PERITONITIS [None]
  - PNEUMONIA ASPIRATION [None]
  - SEPTIC SHOCK [None]
  - SURGICAL PROCEDURE REPEATED [None]
  - VOMITING [None]
